FAERS Safety Report 9643352 (Version 3)
Quarter: 2013Q4

REPORT INFORMATION
  Report Type: Spontaneous
  Country: JP (occurrence: JP)
  Receive Date: 20131024
  Receipt Date: 20131106
  Transmission Date: 20140711
  Serious: Yes (Other)
  Sender: FDA-Public Use
  Company Number: JP-ELI_LILLY_AND_COMPANY-JP201310004590

PATIENT
  Age: 40 Year
  Sex: Female

DRUGS (11)
  1. CYMBALTA [Suspect]
     Indication: DEPRESSION
     Dosage: 20 MG, QD
     Route: 048
     Dates: start: 201207, end: 20130926
  2. LEXAPRO [Suspect]
     Indication: DEPRESSION
     Dosage: 10 UNK, UNK
     Route: 048
     Dates: end: 20130801
  3. LEXAPRO [Suspect]
     Dosage: UNK
     Route: 048
     Dates: start: 20130919
  4. LONASEN [Concomitant]
     Dosage: 4 MG, UNK
     Route: 048
     Dates: start: 201207
  5. LEVOTOMIN                          /00038602/ [Concomitant]
     Dosage: 75 MG, UNK
     Route: 048
     Dates: start: 201207
  6. DEPAS [Concomitant]
     Dosage: 3 MG, UNK
     Route: 048
     Dates: start: 201207
  7. FLUNITRAZEPAM [Concomitant]
     Dosage: UNK
     Route: 048
     Dates: start: 201207
  8. GOODMIN [Concomitant]
     Dosage: UNK
     Route: 048
     Dates: start: 201207
  9. ALLORIN [Concomitant]
     Dosage: UNK
     Route: 048
     Dates: start: 201207
  10. MUCOSTA [Concomitant]
     Dosage: UNK
     Route: 048
     Dates: start: 201207
  11. LOXONIN [Concomitant]
     Dosage: UNK
     Route: 048
     Dates: start: 201207

REACTIONS (1)
  - Syncope [Not Recovered/Not Resolved]
